FAERS Safety Report 7416296-8 (Version None)
Quarter: 2011Q2

REPORT INFORMATION
  Report Type: 
  Country: None (occurrence: None)
  Receive Date: 20110414
  Receipt Date: 20110412
  Transmission Date: 20111010
  Serious: Yes (Hospitalization, Disabling)
  Sender: FDA-Public Use
  Company Number: FR-ELI_LILLY_AND_COMPANY-FR201104003081

PATIENT
  Sex: Male

DRUGS (3)
  1. KARDEGIC [Concomitant]
     Dosage: 75 MG, QD
     Route: 048
  2. EFFIENT [Suspect]
     Dosage: 10 MG, QD
     Route: 048
     Dates: start: 20110210, end: 20110316
  3. KARDEGIC [Concomitant]
     Dosage: 160 MG, QD
     Route: 048
     Dates: start: 20110210

REACTIONS (2)
  - CEREBRAL HAEMATOMA [None]
  - VISUAL FIELD DEFECT [None]
